FAERS Safety Report 9647389 (Version 2)
Quarter: 2013Q4

REPORT INFORMATION
  Report Type: Spontaneous
  Country: TN (occurrence: TN)
  Receive Date: 20131028
  Receipt Date: 20131211
  Transmission Date: 20140711
  Serious: Yes (Death, Hospitalization, Other)
  Sender: FDA-Public Use
  Company Number: PHHY2013TN118166

PATIENT
  Age: 33 Year
  Sex: Male

DRUGS (2)
  1. PYRAZINAMIDE [Suspect]
     Indication: MENINGITIS TUBERCULOUS
     Dates: start: 20130207
  2. OMEPRAZOLE [Suspect]

REACTIONS (14)
  - Haematemesis [Fatal]
  - Pancreatitis [Unknown]
  - Hiccups [Unknown]
  - Abdominal pain upper [Unknown]
  - Hyperlipidaemia [Unknown]
  - Hypocalcaemia [Unknown]
  - Eosinophilia [Unknown]
  - Hypoproteinaemia [Unknown]
  - Hepatitis fulminant [Unknown]
  - Jaundice [Unknown]
  - Faeces discoloured [Unknown]
  - Chromaturia [Unknown]
  - Jaundice cholestatic [Unknown]
  - Acute hepatic failure [Unknown]
